FAERS Safety Report 5289593-2 (Version None)
Quarter: 2007Q2

REPORT INFORMATION
  Report Type: 
  Country: None (occurrence: None)
  Receive Date: 20070406
  Receipt Date: 20070327
  Transmission Date: 20071010
  Serious: Yes (Hospitalization)
  Sender: FDA-Public Use
  Company Number: HQWYE094129MAR07

PATIENT
  Sex: Male
  Weight: 59 kg

DRUGS (11)
  1. MYLOTARG [Suspect]
     Indication: ACUTE MYELOID LEUKAEMIA RECURRENT
     Route: 041
     Dates: start: 20070115, end: 20070115
  2. MYLOTARG [Suspect]
     Route: 041
     Dates: start: 20070129, end: 20070129
  3. ITRACONAZOLE [Concomitant]
     Indication: PROPHYLAXIS
     Route: 048
     Dates: start: 20070112, end: 20070202
  4. FAMOTIDINE [Concomitant]
     Indication: PROPHYLAXIS
     Route: 048
     Dates: start: 20070112, end: 20070202
  5. DALTEPARIN SODIUM [Concomitant]
     Indication: PROPHYLAXIS
     Dosage: 3 KU PER DAY
     Route: 041
     Dates: start: 20070115, end: 20070120
  6. ZOVIRAX [Concomitant]
     Indication: PROPHYLAXIS
     Route: 048
     Dates: start: 20070112, end: 20070227
  7. BAKTAR [Concomitant]
     Indication: PROPHYLAXIS
     Route: 048
     Dates: start: 20070112, end: 20070227
  8. BENET [Concomitant]
     Indication: PROPHYLAXIS
     Route: 048
     Dates: start: 20070112, end: 20070130
  9. ALLORINE [Concomitant]
     Indication: PROPHYLAXIS
     Route: 048
     Dates: start: 20070114, end: 20070120
  10. ALLORINE [Concomitant]
     Route: 048
     Dates: start: 20070121, end: 20070208
  11. CIPROFLOXACIN [Concomitant]
     Indication: PROPHYLAXIS
     Route: 048
     Dates: start: 20070112, end: 20070213

REACTIONS (7)
  - ANOREXIA [None]
  - BLOOD PRESSURE DECREASED [None]
  - HAEMORRHAGIC DIATHESIS [None]
  - HEPATIC FUNCTION ABNORMAL [None]
  - NEUTROPHIL COUNT DECREASED [None]
  - PLATELET COUNT DECREASED [None]
  - SEPSIS [None]
